FAERS Safety Report 12644186 (Version 2)
Quarter: 2016Q3

REPORT INFORMATION
  Report Type: Report from Study
  Country: US (occurrence: US)
  Receive Date: 20160811
  Receipt Date: 20160819
  Transmission Date: 20161109
  Serious: No
  Sender: FDA-Public Use
  Company Number: US-AMGEN-USASL2016100771

PATIENT
  Age: 58 Year
  Sex: Female

DRUGS (1)
  1. ENBREL [Suspect]
     Active Substance: ETANERCEPT
     Indication: RHEUMATOID ARTHRITIS
     Dosage: UNK, 2 TIMES/WK
     Route: 065
     Dates: start: 20100101

REACTIONS (6)
  - Muscle strain [Recovering/Resolving]
  - Neuralgia [Unknown]
  - Pain [Unknown]
  - Skin burning sensation [Unknown]
  - Stress [Unknown]
  - Herpes zoster [Unknown]

NARRATIVE: CASE EVENT DATE: 2016
